FAERS Safety Report 14639541 (Version 1)
Quarter: 2018Q1

REPORT INFORMATION
  Report Type: Spontaneous
  Country: US (occurrence: US)
  Receive Date: 20180315
  Receipt Date: 20180315
  Transmission Date: 20180509
  Serious: No
  Sender: FDA-Public Use
  Company Number: US-TEVA-2018-US-860501

PATIENT
  Age: 27 Year
  Sex: Male

DRUGS (1)
  1. NUVIGIL [Suspect]
     Active Substance: ARMODAFINIL
     Indication: SHIFT WORK DISORDER
     Route: 065
     Dates: start: 2011

REACTIONS (1)
  - Drug effect incomplete [Unknown]
